FAERS Safety Report 5454163-X (Version None)
Quarter: 2007Q3

REPORT INFORMATION
  Report Type: 
  Country: None (occurrence: None)
  Receive Date: 20070917
  Receipt Date: 20070228
  Transmission Date: 20080115
  Serious: Yes (Other)
  Sender: FDA-Public Use
  Company Number: US-ASTRAZENECA-2006UW11293

PATIENT
  Sex: Male
  Weight: 55.5 kg

DRUGS (8)
  1. SEROQUEL [Suspect]
     Indication: SCHIZOPHRENIA
     Route: 048
  2. SEROQUEL [Suspect]
     Indication: BIPOLAR DISORDER
     Route: 048
  3. ZYPREXA [Suspect]
  4. CLOZARIL [Concomitant]
     Dates: start: 20000101
  5. HALDOL [Concomitant]
     Dates: start: 19970101
  6. RISPERDAL [Concomitant]
     Dates: start: 19970101, end: 20000101
  7. THORAZINE [Concomitant]
     Dates: start: 19640101
  8. ZYPREXA [Concomitant]
     Dates: start: 20020101

REACTIONS (1)
  - PANCREATITIS [None]
